FAERS Safety Report 6699554-4 (Version None)
Quarter: 2010Q2

REPORT INFORMATION
  Report Type: 
  Country: None (occurrence: None)
  Receive Date: 20100427
  Receipt Date: 20100427
  Transmission Date: 20101027
  Serious: Yes (Other)
  Sender: FDA-Public Use
  Company Number: None

PATIENT
  Age: 28 Year
  Sex: Male
  Weight: 86.1834 kg

DRUGS (4)
  1. PAROXETINE HCL [Suspect]
     Indication: ANXIETY
     Dosage: ONE PILL DAILY PO
     Route: 048
     Dates: start: 20100301, end: 20100425
  2. PAROXETINE HCL [Suspect]
     Indication: DEPRESSION
     Dosage: ONE PILL DAILY PO
     Route: 048
     Dates: start: 20100301, end: 20100425
  3. PAROXETINE HCL [Suspect]
     Indication: OBSESSIVE-COMPULSIVE DISORDER
     Dosage: ONE PILL DAILY PO
     Route: 048
     Dates: start: 20100301, end: 20100425
  4. PAROXETINE HCL [Suspect]

REACTIONS (6)
  - ABNORMAL DREAMS [None]
  - ANXIETY [None]
  - DIZZINESS [None]
  - FEAR [None]
  - INSOMNIA [None]
  - PRODUCT SUBSTITUTION ISSUE [None]
